FAERS Safety Report 9101480 (Version 1)
Quarter: 2013Q1

REPORT INFORMATION
  Report Type: Spontaneous
  Country: US (occurrence: None)
  Receive Date: 20130220
  Receipt Date: 20130220
  Transmission Date: 20140127
  Serious: Yes (Other)
  Sender: FDA-Public Use
  Company Number: None

PATIENT
  Age: 79 Year
  Sex: Male
  Weight: 103.42 kg

DRUGS (1)
  1. PROVENGE [Suspect]
     Indication: PROSTATE CANCER METASTATIC
     Dosage: ONE UNIT  EVERY OTHER WEEK X   IV
     Route: 042
     Dates: start: 20130215, end: 20130215

REACTIONS (4)
  - Hot flush [None]
  - Chills [None]
  - Headache [None]
  - Blood pressure increased [None]
